FAERS Safety Report 6465834-0 (Version None)
Quarter: 2009Q4

REPORT INFORMATION
  Report Type: 
  Country: None (occurrence: None)
  Receive Date: 20091127
  Receipt Date: 20091113
  Transmission Date: 20100525
  Serious: Yes (Hospitalization, Other)
  Sender: FDA-Public Use
  Company Number: PAR_03211_2009

PATIENT
  Sex: Female
  Weight: 73.4827 kg

DRUGS (5)
  1. MINOXIDIL [Suspect]
     Indication: HYPERTENSION
     Dosage: 5 MG, QD,  AT BEDTIME, ORAL
     Route: 048
     Dates: start: 20090824, end: 20091007
  2. CLONIDINE [Concomitant]
  3. CARVEDILOL [Concomitant]
  4. FUROSEMIDE [Concomitant]
  5. VYTORIN [Concomitant]

REACTIONS (14)
  - ANAEMIA [None]
  - ANXIETY [None]
  - BLOOD CREATINE PHOSPHOKINASE INCREASED [None]
  - CARDIAC MURMUR [None]
  - DRUG EFFECT DECREASED [None]
  - FLUID RETENTION [None]
  - HAIR GROWTH ABNORMAL [None]
  - HYPERTENSION [None]
  - MUSCULOSKELETAL PAIN [None]
  - NON-CARDIAC CHEST PAIN [None]
  - OEDEMA PERIPHERAL [None]
  - TENDONITIS [None]
  - TROPONIN INCREASED [None]
  - WEIGHT INCREASED [None]
